FAERS Safety Report 6151354-X (Version None)
Quarter: 2009Q2

REPORT INFORMATION
  Report Type: 
  Country: None (occurrence: None)
  Receive Date: 20090410
  Receipt Date: 20090401
  Transmission Date: 20091009
  Serious: Yes (Other)
  Sender: FDA-Public Use
  Company Number: AU-JNJFOC-20090401301

PATIENT
  Sex: Male
  Weight: 86 kg

DRUGS (11)
  1. TMC125 [Suspect]
     Route: 048
  2. TMC125 [Suspect]
     Indication: HIV INFECTION
     Route: 048
  3. DARUNAVIR [Suspect]
     Indication: HIV INFECTION
     Route: 048
  4. RITONAVIR [Suspect]
     Indication: HIV INFECTION
  5. RALTEGRAVIR [Suspect]
     Indication: HIV INFECTION
     Route: 048
  6. RESTYLANE [Concomitant]
     Indication: LIPODYSTROPHY ACQUIRED
     Route: 058
  7. CRESTOR [Concomitant]
     Indication: LIPIDS INCREASED
     Route: 048
  8. TENOFOVIR [Concomitant]
     Indication: HIV INFECTION
     Route: 048
  9. NEVIRAPINE [Concomitant]
     Indication: HIV INFECTION
     Route: 048
  10. ABACAVIR [Concomitant]
     Indication: HIV INFECTION
     Route: 048
  11. DOXCYCLINE [Concomitant]
     Indication: LOWER RESPIRATORY TRACT INFECTION
     Route: 048

REACTIONS (8)
  - COUGH [None]
  - FATIGUE [None]
  - HEADACHE [None]
  - LIVER FUNCTION TEST ABNORMAL [None]
  - LOSS OF CONSCIOUSNESS [None]
  - NAUSEA [None]
  - NEUTROPHIL COUNT DECREASED [None]
  - PLATELET COUNT DECREASED [None]
